FAERS Safety Report 22803752 (Version 5)
Quarter: 2025Q3

REPORT INFORMATION
  Report Type: Report from Study
  Country: CA (occurrence: CA)
  Receive Date: 20230809
  Receipt Date: 20250909
  Transmission Date: 20251021
  Serious: Yes (Hospitalization, Other)
  Sender: TAKEDA
  Company Number: CA-TAKEDA-2023TUS077067

PATIENT
  Sex: Female

DRUGS (23)
  1. HUMAN IMMUNOGLOBULIN G [Suspect]
     Active Substance: HUMAN IMMUNOGLOBULIN G
     Indication: Primary immunodeficiency syndrome
     Dosage: 10 GRAM, 1/WEEK
     Dates: start: 20230801
  2. HUMAN IMMUNOGLOBULIN G [Suspect]
     Active Substance: HUMAN IMMUNOGLOBULIN G
     Dosage: 12 GRAM, 1/WEEK
  3. HUMAN IMMUNOGLOBULIN G [Suspect]
     Active Substance: HUMAN IMMUNOGLOBULIN G
     Dosage: UNK UNK, 1/WEEK
  4. HUMAN IMMUNOGLOBULIN G [Suspect]
     Active Substance: HUMAN IMMUNOGLOBULIN G
     Dosage: UNK UNK, 3/WEEK
  5. TORADOL [Suspect]
     Active Substance: KETOROLAC TROMETHAMINE
     Indication: Product used for unknown indication
  6. DILAUDID [Suspect]
     Active Substance: HYDROMORPHONE HYDROCHLORIDE
     Indication: Product used for unknown indication
  7. BACLOFEN [Suspect]
     Active Substance: BACLOFEN
     Indication: Product used for unknown indication
  8. ATIVAN [Suspect]
     Active Substance: LORAZEPAM
     Indication: Product used for unknown indication
  9. ESTRADIOL [Concomitant]
     Active Substance: ESTRADIOL
  10. PREMARIN [Concomitant]
     Active Substance: ESTROGENS, CONJUGATED
  11. ONABOTULINUMTOXINA [Concomitant]
     Active Substance: ONABOTULINUMTOXINA
     Dosage: UNK UNK, Q3MONTHS
  12. DUTASTERIDE [Concomitant]
     Active Substance: DUTASTERIDE
  13. MINOXIDIL [Concomitant]
     Active Substance: MINOXIDIL
  14. SPIRONOLACTONE [Concomitant]
     Active Substance: SPIRONOLACTONE
  15. LISDEXAMFETAMINE [Concomitant]
     Active Substance: LISDEXAMFETAMINE
  16. BILASTINE [Concomitant]
     Active Substance: BILASTINE
  17. BIMATOPROST [Concomitant]
     Active Substance: BIMATOPROST
  18. TRAZODONE [Concomitant]
     Active Substance: TRAZODONE HYDROCHLORIDE
  19. VITAMIN C [Concomitant]
     Active Substance: ASCORBIC ACID
     Dosage: UNK UNK, QD
  20. IRON [Concomitant]
     Active Substance: IRON
     Dosage: UNK UNK, 3/WEEK
  21. MAGNESIUM [Concomitant]
     Active Substance: MAGNESIUM
     Indication: Muscle disorder
     Dosage: UNK UNK, QD
  22. VITAMIN D [Concomitant]
     Active Substance: VITAMIN D NOS
     Dosage: UNK UNK, 3/WEEK
  23. DIAZEPAM [Concomitant]
     Active Substance: DIAZEPAM

REACTIONS (10)
  - Renal pain [Not Recovered/Not Resolved]
  - Lower respiratory tract infection [Not Recovered/Not Resolved]
  - Eye pain [Not Recovered/Not Resolved]
  - Urinary tract infection [Not Recovered/Not Resolved]
  - Candida infection [Not Recovered/Not Resolved]
  - Vision blurred [Not Recovered/Not Resolved]
  - Migraine [Not Recovered/Not Resolved]
  - Eye swelling [Not Recovered/Not Resolved]
  - Muscle spasms [Not Recovered/Not Resolved]
  - Iritis [Not Recovered/Not Resolved]

NARRATIVE: CASE EVENT DATE: 20230101
